FAERS Safety Report 21628362 (Version 1)
Quarter: 2022Q4

REPORT INFORMATION
  Report Type: Spontaneous
  Country: US (occurrence: US)
  Receive Date: 20221122
  Receipt Date: 20221122
  Transmission Date: 20230113
  Serious: No
  Sender: FDA-Public Use
  Company Number: US-PFIZER INC-202201314241

PATIENT
  Age: 73 Year
  Sex: Male

DRUGS (1)
  1. SPIRONOLACTONE [Suspect]
     Active Substance: SPIRONOLACTONE
     Indication: Fluid retention
     Dosage: UNK

REACTIONS (2)
  - Renal disorder [Recovering/Resolving]
  - Fall [Recovering/Resolving]
